FAERS Safety Report 5842924-4 (Version None)
Quarter: 2008Q3

REPORT INFORMATION
  Report Type: 
  Country: None (occurrence: None)
  Receive Date: 20080813
  Receipt Date: 20080807
  Transmission Date: 20090109
  Serious: Yes (Hospitalization)
  Sender: FDA-Public Use
  Company Number: SE-CELGENEUS-150-C5013-08051473

PATIENT
  Sex: Male
  Weight: 67.3 kg

DRUGS (18)
  1. REVLIMID [Suspect]
     Indication: MULTIPLE MYELOMA
     Route: 048
     Dates: start: 20080512, end: 20080526
  2. MELPHALAN [Suspect]
     Indication: MULTIPLE MYELOMA
     Route: 048
     Dates: start: 20080512, end: 20080515
  3. PREDNISONE TAB [Suspect]
     Indication: MULTIPLE MYELOMA
     Route: 048
     Dates: start: 20080512, end: 20080515
  4. PAMIDRON SYRA [Concomitant]
     Indication: OSTEOPOROSIS
     Route: 051
     Dates: start: 20080316
  5. BISOPROLOL FUMARATE [Concomitant]
     Indication: CARDIAC REHABILITATION THERAPY
     Route: 048
     Dates: start: 20061212
  6. LOSARTAN POTASSIUM [Concomitant]
     Indication: CARDIAC REHABILITATION THERAPY
     Route: 048
     Dates: start: 20080414
  7. OXAZEPAM [Concomitant]
     Indication: SEDATIVE THERAPY
     Route: 048
     Dates: start: 20080309
  8. PARACETAMOL [Concomitant]
     Indication: ANALGESIA
     Route: 048
     Dates: start: 20080301
  9. OXICODON [Concomitant]
     Indication: ANALGESIA
     Route: 048
     Dates: start: 20080301
  10. FUROSEMIDE [Concomitant]
     Indication: DIURETIC THERAPY
     Route: 048
     Dates: start: 20061212
  11. ACETYLSALICYLIC ACID SRT [Concomitant]
     Indication: ANTICOAGULANT THERAPY
     Route: 048
     Dates: start: 20061201
  12. ZOPLIKON [Concomitant]
     Indication: INSOMNIA
     Route: 048
     Dates: start: 20061205
  13. MAGNESIUM HYDROXID [Concomitant]
     Indication: MAGNESIUM DEFICIENCY
     Route: 048
     Dates: start: 20080319
  14. CIPROFLOXACIN [Concomitant]
     Indication: ANTIBIOTIC PROPHYLAXIS
     Route: 048
     Dates: start: 20080504
  15. PREDNISOLON [Concomitant]
     Indication: STEROID THERAPY
     Route: 048
     Dates: start: 20080505, end: 20080509
  16. POTASSIUM CHLORIDE [Concomitant]
     Indication: CONSTIPATION
     Route: 048
     Dates: start: 20080324
  17. LAKTULOS [Concomitant]
     Indication: CONSTIPATION
     Route: 048
     Dates: start: 20080327
  18. COCCILANA EXTRACT [Concomitant]
     Indication: ANTITUSSIVE THERAPY
     Route: 048
     Dates: start: 20080411

REACTIONS (4)
  - BLISTER [None]
  - ERYTHEMA [None]
  - NAUSEA [None]
  - URINARY TRACT INFECTION [None]
